FAERS Safety Report 4795250-9 (Version None)
Quarter: 2005Q4

REPORT INFORMATION
  Report Type: 
  Country: None (occurrence: None)
  Receive Date: 20051012
  Receipt Date: 20050515
  Transmission Date: 20060501
  Serious: Yes (Hospitalization, Other)
  Sender: FDA-Public Use
  Company Number: PHEH2005US05494

PATIENT
  Age: 41 Year
  Sex: Female

DRUGS (10)
  1. ZELNORM [Suspect]
     Indication: IMPAIRED GASTRIC EMPTYING
     Dosage: 6 MG, BID
     Route: 048
     Dates: start: 20040601, end: 20050401
  2. ZONEGRAN [Concomitant]
     Indication: NEURALGIA
     Dosage: 300 - 400 MG HS
  3. ZANAFLEX [Concomitant]
     Indication: BACK PAIN
     Dosage: UNK, UNK
  4. PRAVACHOL [Concomitant]
     Indication: HYPERCHOLESTEROLAEMIA
     Dosage: 20 MG, QHS
     Dates: start: 20050301
  5. LISINOPRIL [Concomitant]
     Indication: HYPERTENSION
     Dosage: 10 MG, UNK
     Dates: start: 20031001
  6. ATENOLOL [Concomitant]
     Indication: HYPERTENSION
     Dosage: 50 MG, UNK
     Dates: start: 20041001
  7. OXYCONTIN [Concomitant]
     Indication: BACK PAIN
     Dosage: 40 MG, TID
     Dates: start: 20030101
  8. OXYCONTIN [Concomitant]
     Dosage: 20 MG, TID
  9. NORCO [Concomitant]
     Dosage: 10/325 1-2 TABS A DAY PRN
     Dates: start: 20030101
  10. PHENERGAN [Concomitant]
     Indication: NAUSEA
     Dosage: 25 MG 1-2 TABS PRN
     Dates: start: 20040501

REACTIONS (16)
  - ABDOMINAL PAIN [None]
  - ABDOMINAL TENDERNESS [None]
  - BLOOD CREATININE INCREASED [None]
  - COLITIS ISCHAEMIC [None]
  - DECREASED APPETITE [None]
  - HAEMOGLOBIN DECREASED [None]
  - HYPERCHOLESTEROLAEMIA [None]
  - HYPOVOLAEMIA [None]
  - INTESTINAL ULCER [None]
  - NAUSEA [None]
  - PLATELET COUNT DECREASED [None]
  - PYREXIA [None]
  - RECTAL HAEMORRHAGE [None]
  - RED BLOOD CELL COUNT DECREASED [None]
  - VOMITING [None]
  - WHITE BLOOD CELL COUNT DECREASED [None]
